FAERS Safety Report 15394844 (Version 1)
Quarter: 2018Q3

REPORT INFORMATION
  Report Type: Spontaneous
  Country: GB (occurrence: GB)
  Receive Date: 20180918
  Receipt Date: 20180918
  Transmission Date: 20181010
  Serious: Yes (Other)
  Sender: FDA-Public Use
  Company Number: GB-TEVA-2018-GB-955587

PATIENT
  Age: 62 Year
  Sex: Male

DRUGS (5)
  1. IRINOTECAN HYDROCHLORIDE. [Suspect]
     Active Substance: IRINOTECAN HYDROCHLORIDE
     Route: 042
     Dates: end: 20061020
  2. PREDNISOLONE. [Suspect]
     Active Substance: PREDNISOLONE
     Indication: POLYMYOSITIS
     Route: 048
  3. ATROPINE SULPHATE [Suspect]
     Active Substance: ATROPINE SULFATE
     Indication: ANTICHOLINERGIC SYNDROME
     Route: 042
  4. IRINOTECAN HYDROCHLORIDE. [Suspect]
     Active Substance: IRINOTECAN HYDROCHLORIDE
     Route: 042
     Dates: start: 20061006, end: 20061006
  5. IRINOTECAN HYDROCHLORIDE. [Suspect]
     Active Substance: IRINOTECAN HYDROCHLORIDE
     Indication: GASTROINTESTINAL CARCINOMA
     Route: 042
     Dates: start: 20061013

REACTIONS (2)
  - Muscular weakness [Recovered/Resolved]
  - Monoparesis [Recovered/Resolved]

NARRATIVE: CASE EVENT DATE: 20061017
